FAERS Safety Report 7821540-9 (Version None)
Quarter: 2011Q4

REPORT INFORMATION
  Report Type: 
  Country: None (occurrence: None)
  Receive Date: 20111018
  Receipt Date: 20110516
  Transmission Date: 20120403
  Serious: No
  Sender: FDA-Public Use
  Company Number: US-ASTRAZENECA-2011SE30207

PATIENT
  Age: 48 Year
  Sex: Female

DRUGS (1)
  1. SYMBICORT [Suspect]
     Dosage: UNK FREQUENCY
     Route: 055

REACTIONS (7)
  - ASTHMA [None]
  - ALLERGY TO CHEMICALS [None]
  - DYSPHONIA [None]
  - EXPIRED DRUG ADMINISTERED [None]
  - CHEST DISCOMFORT [None]
  - HYPERSENSITIVITY [None]
  - COUGH [None]
